FAERS Safety Report 7249607-7 (Version None)
Quarter: 2011Q1

REPORT INFORMATION
  Report Type: 
  Country: None (occurrence: None)
  Receive Date: 20110128
  Receipt Date: 20101216
  Transmission Date: 20110831
  Serious: Yes (Hospitalization, Other)
  Sender: FDA-Public Use
  Company Number: US-BAYER-200942373NA

PATIENT
  Sex: Female

DRUGS (9)
  1. NEXIUM [Concomitant]
     Dosage: 40 MG, BID
  2. CARAFATE [Concomitant]
     Dosage: 1 G, TID
  3. XANAX [Concomitant]
     Dosage: 1 MG, PRN
  4. AUGMENTIN '125' [Concomitant]
  5. MACROBID [Concomitant]
     Dosage: 100 MG, QD
  6. BENICAR [Concomitant]
     Dosage: UNK UNK, PRN
  7. YASMIN [Suspect]
     Indication: PRODUCT USED FOR UNKNOWN INDICATION
     Dosage: UNK
     Dates: start: 20080301, end: 20090601
  8. TAMIFLU [Concomitant]
     Dosage: UNK UNK, QD
     Route: 048
  9. YAZ [Suspect]
     Indication: PRODUCT USED FOR UNKNOWN INDICATION
     Dosage: UNK
     Dates: start: 20080301, end: 20090601

REACTIONS (11)
  - CHEST PAIN [None]
  - GASTROOESOPHAGEAL REFLUX DISEASE [None]
  - ABDOMINAL PAIN UPPER [None]
  - NAUSEA [None]
  - HIATUS HERNIA [None]
  - CHOLECYSTITIS CHRONIC [None]
  - VOMITING [None]
  - BILIARY DYSKINESIA [None]
  - HELICOBACTER GASTRITIS [None]
  - PEPTIC ULCER [None]
  - DIARRHOEA [None]
